FAERS Safety Report 6971643-6 (Version None)
Quarter: 2010Q3

REPORT INFORMATION
  Report Type: 
  Country: None (occurrence: None)
  Receive Date: 20100908
  Receipt Date: 20100830
  Transmission Date: 20110219
  Serious: Yes (Hospitalization, Other)
  Sender: FDA-Public Use
  Company Number: PHHY2010TW25224

PATIENT
  Sex: Female

DRUGS (4)
  1. ZOLEDRONIC [Suspect]
     Indication: OSTEOPOROSIS
     Dosage: 5 MG
     Route: 042
     Dates: start: 20100419, end: 20100419
  2. NSAID'S [Concomitant]
  3. NATRILIX [Concomitant]
  4. ATENOLOL [Concomitant]

REACTIONS (9)
  - CEREBROVASCULAR ACCIDENT [None]
  - DIZZINESS [None]
  - GENERALISED ERYTHEMA [None]
  - OEDEMA PERIPHERAL [None]
  - PAIN [None]
  - PYREXIA [None]
  - SWELLING FACE [None]
  - URINARY INCONTINENCE [None]
  - VOMITING [None]
